FAERS Safety Report 5809333-5 (Version None)
Quarter: 2008Q3

REPORT INFORMATION
  Report Type: 
  Country: None (occurrence: None)
  Receive Date: 20080714
  Receipt Date: 20080702
  Transmission Date: 20090109
  Serious: Yes (Hospitalization, Other)
  Sender: FDA-Public Use
  Company Number: PHEH2008US05970

PATIENT
  Sex: Female
  Weight: 67.574 kg

DRUGS (4)
  1. FEMARA [Suspect]
     Dosage: 2.5 MG, QD
     Route: 048
     Dates: start: 19990101, end: 20080706
  2. VITAMIN CAP [Concomitant]
  3. ASCORBIC ACID [Concomitant]
  4. EFA PLUS [Concomitant]

REACTIONS (5)
  - ALOPECIA [None]
  - APHASIA [None]
  - CONSTIPATION [None]
  - TRANSIENT ISCHAEMIC ATTACK [None]
  - WEIGHT INCREASED [None]
